FAERS Safety Report 8454038 (Version 2)
Quarter: 2014Q2

REPORT INFORMATION
  Report Type: Spontaneous
  Country: None (occurrence: FR)
  Receive Date: 20120312
  Receipt Date: 20140402
  Transmission Date: 20141212
  Serious: Yes (Disabling, Other)
  Sender: FDA-Public Use
  Company Number: FR-EISAI INC-E7273-00294-SPO-FR

PATIENT
  Age: 60 Year
  Sex: Male
  Weight: 65 kg

DRUGS (5)
  1. TARGRETIN CAPSULES [Suspect]
     Indication: MYCOSIS FUNGOIDES
     Dosage: UNKNOWN
     Route: 048
     Dates: start: 201109, end: 201110
  2. TARGRETIN CAPSULES [Suspect]
     Dosage: UNKNOWN (INCREASED DOSE)
     Route: 048
     Dates: start: 2011, end: 201201
  3. TARGRETIN CAPSULES [Suspect]
     Dosage: UNKNOWN (DECREASED DOSE)
     Route: 048
     Dates: start: 201201, end: 20130906
  4. LEVOTHYROX [Concomitant]
     Indication: PRODUCT USED FOR UNKNOWN INDICATION
     Dosage: 50 MCG
     Route: 065
  5. LIPANTHYL 67 [Concomitant]
     Indication: PRODUCT USED FOR UNKNOWN INDICATION
     Dosage: UNKNOWN
     Route: 065

REACTIONS (7)
  - Apathy [Not Recovered/Not Resolved]
  - Dyspepsia [Not Recovered/Not Resolved]
  - Haematospermia [Recovered/Resolved]
  - Depression [Unknown]
  - Hypothyroidism [Not Recovered/Not Resolved]
  - Asthenia [Unknown]
  - Acne [Not Recovered/Not Resolved]
